FAERS Safety Report 21089017 (Version 2)
Quarter: 2022Q3

REPORT INFORMATION
  Report Type: Report from Study
  Country: US (occurrence: US)
  Receive Date: 20220715
  Receipt Date: 20220722
  Transmission Date: 20221026
  Serious: No
  Sender: FDA-Public Use
  Company Number: US-BIOVITRUM-2022US08742

PATIENT
  Sex: Female

DRUGS (23)
  1. KINERET [Suspect]
     Active Substance: ANAKINRA
     Indication: Rheumatoid arthritis
     Dates: start: 20220708
  2. KINERET [Suspect]
     Active Substance: ANAKINRA
     Dates: start: 20220707
  3. CYANOCOBALAMIN [Concomitant]
     Active Substance: CYANOCOBALAMIN
  4. OMEPRAZOLE [Concomitant]
     Active Substance: OMEPRAZOLE
  5. SERTRALINE [Concomitant]
     Active Substance: SERTRALINE HYDROCHLORIDE
  6. ALPRAZOLAM [Concomitant]
     Active Substance: ALPRAZOLAM
  7. LASIX [Concomitant]
     Active Substance: FUROSEMIDE
  8. TELMISARTAN [Concomitant]
     Active Substance: TELMISARTAN
  9. BROVANA [Concomitant]
     Active Substance: ARFORMOTEROL TARTRATE
  10. SINGULAIR [Concomitant]
     Active Substance: MONTELUKAST SODIUM
  11. ALENDRONATE [Concomitant]
     Active Substance: ALENDRONATE SODIUM
  12. IRON [Concomitant]
     Active Substance: IRON
  13. TRAZODONE [Concomitant]
     Active Substance: TRAZODONE HYDROCHLORIDE
  14. GABAPENTIN [Concomitant]
     Active Substance: GABAPENTIN
  15. POTASSIUM CHLORIDE [Concomitant]
     Active Substance: POTASSIUM CHLORIDE
  16. ALBUTEROL [Concomitant]
     Active Substance: ALBUTEROL
  17. ARIPIPRAZOLE [Concomitant]
     Active Substance: ARIPIPRAZOLE
  18. FLEXERIL [Concomitant]
     Active Substance: CYCLOBENZAPRINE HYDROCHLORIDE
  19. PRAVASTATIN [Concomitant]
     Active Substance: PRAVASTATIN
  20. HYDROXYZINE [Concomitant]
     Active Substance: HYDROXYZINE HYDROCHLORIDE
  21. NITROGLYCERIN [Concomitant]
     Active Substance: NITROGLYCERIN
  22. TRAMADOL [Concomitant]
     Active Substance: TRAMADOL
  23. RANOLAZINE [Concomitant]
     Active Substance: RANOLAZINE

REACTIONS (7)
  - Rhinorrhoea [Unknown]
  - Influenza like illness [Unknown]
  - Pain [Unknown]
  - Red blood cell count decreased [Unknown]
  - Haemoglobin decreased [Unknown]
  - Haematocrit decreased [Unknown]
  - Headache [Unknown]
